FAERS Safety Report 24689347 (Version 2)
Quarter: 2025Q3

REPORT INFORMATION
  Report Type: Report from Study
  Country: US (occurrence: US)
  Receive Date: 20241203
  Receipt Date: 20250809
  Transmission Date: 20251021
  Serious: Yes (Other)
  Sender: ALEXION PHARMACEUTICALS
  Company Number: US-AstraZeneca-CH-00755652A

PATIENT
  Sex: Female

DRUGS (1)
  1. OSIMERTINIB [Suspect]
     Active Substance: OSIMERTINIB
     Indication: Lung carcinoma cell type unspecified stage I
     Dates: start: 202408

REACTIONS (5)
  - Diabetes mellitus [Unknown]
  - Dry skin [Unknown]
  - Lip dry [Unknown]
  - Dehydration [Unknown]
  - Drug ineffective [Unknown]
